FAERS Safety Report 20467700 (Version 1)
Quarter: 2022Q1

REPORT INFORMATION
  Report Type: Spontaneous
  Country: US (occurrence: US)
  Receive Date: 20220214
  Receipt Date: 20220214
  Transmission Date: 20220423
  Serious: Yes (Other)
  Sender: FDA-Public Use
  Company Number: US-AMGEN-USASP2022022724

PATIENT
  Age: 73 Year
  Sex: Female

DRUGS (1)
  1. EVENITY [Suspect]
     Active Substance: ROMOSOZUMAB-AQQG
     Indication: Osteoporosis
     Dosage: UNK UNK, UNK
     Route: 058
     Dates: start: 202111

REACTIONS (14)
  - Spinal operation [Unknown]
  - Sleep disorder [Unknown]
  - Myalgia [Unknown]
  - Dysarthria [Unknown]
  - Joint swelling [Unknown]
  - Pain [Unknown]
  - Pruritus [Unknown]
  - Abdominal pain [Unknown]
  - Back pain [Unknown]
  - Musculoskeletal stiffness [Unknown]
  - Muscle spasms [Unknown]
  - Injection site swelling [Unknown]
  - Injection site pain [Unknown]
  - Injection site mass [Unknown]

NARRATIVE: CASE EVENT DATE: 20220101
